FAERS Safety Report 11705280 (Version 1)
Quarter: 2015Q4

REPORT INFORMATION
  Report Type: Spontaneous
  Country: US (occurrence: US)
  Receive Date: 20151106
  Receipt Date: 20151106
  Transmission Date: 20160304
  Serious: No
  Sender: FDA-Public Use
  Company Number: US-BAYER-2015-462245

PATIENT
  Age: 81 Year
  Sex: Male
  Weight: 63.49 kg

DRUGS (1)
  1. OXYTROL FOR WOMEN [Suspect]
     Active Substance: OXYBUTYNIN
     Indication: HYPERTONIC BLADDER
     Dosage: 1 DF, UNK (EVERY 4 DAYS)
     Route: 061
     Dates: start: 2013, end: 20151103

REACTIONS (2)
  - Product use issue [Unknown]
  - Expired product administered [Unknown]
